FAERS Safety Report 5795653-X (Version None)
Quarter: 2008Q2

REPORT INFORMATION
  Report Type: 
  Country: None (occurrence: None)
  Receive Date: 20080630
  Receipt Date: 20080618
  Transmission Date: 20081010
  Serious: Yes (Other)
  Sender: FDA-Public Use
  Company Number: US-PFIZER INC-2008052632

PATIENT
  Sex: Male
  Weight: 84.5 kg

DRUGS (3)
  1. CHANTIX [Suspect]
     Indication: SMOKING CESSATION THERAPY
     Dates: start: 20080101, end: 20080101
  2. PREVACID [Concomitant]
  3. NAPROSYN [Concomitant]

REACTIONS (4)
  - CONSTIPATION [None]
  - IMPAIRED WORK ABILITY [None]
  - INFLAMMATION [None]
  - TESTICULAR PAIN [None]
